FAERS Safety Report 16190754 (Version 1)
Quarter: 2019Q2

REPORT INFORMATION
  Report Type: Spontaneous
  Country: US (occurrence: US)
  Receive Date: 20190412
  Receipt Date: 20190412
  Transmission Date: 20190711
  Serious: No
  Sender: FDA-Public Use
  Company Number: US-TEVA-2019-US-1035485

PATIENT
  Age: 9 Year
  Sex: Female

DRUGS (1)
  1. CLOBETASOL [Suspect]
     Active Substance: CLOBETASOL
     Indication: LICHEN SCLEROSUS
     Dosage: APPLY TO THE LESION DAILY
     Route: 061

REACTIONS (1)
  - Drug ineffective [Unknown]
